FAERS Safety Report 4559681-4 (Version None)
Quarter: 2005Q1

REPORT INFORMATION
  Report Type: 
  Country: None (occurrence: None)
  Receive Date: 20050114
  Receipt Date: 20031216
  Transmission Date: 20050727
  Serious: Yes (Other)
  Sender: FDA-Public Use
  Company Number: 20031204022

PATIENT
  Sex: Female
  Weight: 61.2356 kg

DRUGS (1)
  1. INTRAUTERINE COPPER CONTRACEPTIVE [Suspect]
     Indication: CONTRACEPTION
     Dosage: NA, NA; INTRA-UTERINE
     Route: 015
     Dates: start: 20031215, end: 20031215

REACTIONS (1)
  - UTERINE PERFORATION [None]
